FAERS Safety Report 9366238 (Version 5)
Quarter: 2014Q2

REPORT INFORMATION
  Report Type: Spontaneous
  Country: US (occurrence: US)
  Receive Date: 20130625
  Receipt Date: 20140411
  Transmission Date: 20141212
  Serious: Yes (Hospitalization, Other)
  Sender: FDA-Public Use
  Company Number: US-JNJFOC-20130607879

PATIENT
  Age: 69 None
  Sex: Female
  Weight: 104.33 kg

DRUGS (12)
  1. DURAGESIC [Suspect]
     Indication: PAIN
     Route: 062
     Dates: start: 2009, end: 2012
  2. DURAGESIC [Suspect]
     Indication: PAIN
     Route: 062
  3. DURAGESIC [Suspect]
     Indication: PAIN
     Route: 062
  4. DURAGESIC [Suspect]
     Indication: PAIN
     Route: 062
  5. DURAGESIC [Suspect]
     Indication: PAIN
     Route: 062
     Dates: start: 2012
  6. DURAGESIC [Suspect]
     Indication: PAIN
     Route: 062
  7. DURAGESIC [Suspect]
     Indication: PAIN
     Route: 062
     Dates: end: 2009
  8. DURAGESIC [Suspect]
     Indication: PAIN
     Route: 062
  9. UNSPECIFIED FENTANYL [Suspect]
     Indication: PAIN
     Route: 062
     Dates: start: 2005, end: 2005
  10. UNSPECIFIED FENTANYL [Suspect]
     Indication: PAIN
     Route: 062
     Dates: start: 2006, end: 2006
  11. UNSPECIFIED FENTANYL [Suspect]
     Indication: PAIN
     Route: 062
     Dates: start: 2008, end: 2008
  12. SANDOZ FENTANYL TRANSDERMAL SYSTEM [Suspect]
     Indication: PAIN
     Route: 062
     Dates: start: 2009, end: 2009

REACTIONS (19)
  - Arthritis [Unknown]
  - Arthropathy [Recovered/Resolved]
  - Arthropathy [Recovered/Resolved]
  - Visual impairment [Unknown]
  - Drug withdrawal syndrome [Unknown]
  - Pain [Not Recovered/Not Resolved]
  - Poor quality sleep [Unknown]
  - Treatment noncompliance [Unknown]
  - Dyslexia [Not Recovered/Not Resolved]
  - Inappropriate schedule of drug administration [Not Recovered/Not Resolved]
  - Dermatitis contact [Not Recovered/Not Resolved]
  - Drug dose omission [Recovered/Resolved]
  - Feeling abnormal [Not Recovered/Not Resolved]
  - Chills [Recovering/Resolving]
  - Product adhesion issue [Unknown]
  - Drug ineffective [Not Recovered/Not Resolved]
  - Influenza [Recovering/Resolving]
  - Diarrhoea [Recovering/Resolving]
  - Wrong technique in drug usage process [Unknown]
